FAERS Safety Report 22167818 (Version 1)
Quarter: 2023Q2

REPORT INFORMATION
  Report Type: Spontaneous
  Country: GB (occurrence: GB)
  Receive Date: 20230403
  Receipt Date: 20230403
  Transmission Date: 20230721
  Serious: Yes (Other)
  Sender: FDA-Public Use
  Company Number: GB-MYLANLABS-2023M1034700

PATIENT
  Age: 42 Year
  Sex: Female

DRUGS (9)
  1. FLUOROURACIL [Suspect]
     Active Substance: FLUOROURACIL
     Indication: Evidence based treatment
     Dosage: UNK
     Route: 065
  2. FLUOROURACIL [Suspect]
     Active Substance: FLUOROURACIL
     Indication: Rash
  3. FLUOROURACIL [Suspect]
     Active Substance: FLUOROURACIL
     Indication: Rash papulosquamous
  4. CLOBETASONE BUTYRATE [Suspect]
     Active Substance: CLOBETASONE BUTYRATE
     Indication: Evidence based treatment
     Dosage: UNK
     Route: 065
  5. CLOBETASONE BUTYRATE [Suspect]
     Active Substance: CLOBETASONE BUTYRATE
     Indication: Rash
  6. CLOBETASONE BUTYRATE [Suspect]
     Active Substance: CLOBETASONE BUTYRATE
     Indication: Rash papulosquamous
  7. DOVONEX [Suspect]
     Active Substance: CALCIPOTRIENE
     Indication: Evidence based treatment
     Dosage: UNK
     Route: 065
  8. DOVONEX [Suspect]
     Active Substance: CALCIPOTRIENE
     Indication: Rash
  9. DOVONEX [Suspect]
     Active Substance: CALCIPOTRIENE
     Indication: Rash papulosquamous

REACTIONS (1)
  - Drug ineffective [Unknown]
